FAERS Safety Report 7247881-4 (Version None)
Quarter: 2011Q1

REPORT INFORMATION
  Report Type: 
  Country: None (occurrence: None)
  Receive Date: 20110127
  Receipt Date: 20110119
  Transmission Date: 20110831
  Serious: No
  Sender: FDA-Public Use
  Company Number: US-PFIZER INC-2011013944

PATIENT
  Sex: Female
  Weight: 87.982 kg

DRUGS (8)
  1. NEXIUM [Concomitant]
     Indication: PROPHYLAXIS
     Dosage: UNK
  2. CYMBALTA [Concomitant]
     Indication: ARTHRITIS
     Dosage: UNK
  3. ZETIA [Concomitant]
     Indication: BLOOD CHOLESTEROL ABNORMAL
     Dosage: UNK
  4. CELEBREX [Suspect]
     Indication: ARTHRITIS
     Dosage: 200 MG, UNK
     Route: 048
  5. TRAMADOL [Concomitant]
     Indication: ARTHRITIS
     Dosage: UNK
  6. PRAVASTATIN [Concomitant]
     Indication: BLOOD CHOLESTEROL ABNORMAL
     Dosage: UNK
  7. ESTRACE [Concomitant]
     Indication: HORMONE THERAPY
     Dosage: UNK
  8. NEURONTIN [Concomitant]
     Indication: ARTHRITIS
     Dosage: UNK

REACTIONS (4)
  - FLUSHING [None]
  - ERYTHEMA [None]
  - PRURITUS [None]
  - RASH [None]
